FAERS Safety Report 21376442 (Version 3)
Quarter: 2022Q4

REPORT INFORMATION
  Report Type: Spontaneous
  Country: US (occurrence: US)
  Receive Date: 20220926
  Receipt Date: 20221228
  Transmission Date: 20230113
  Serious: No
  Sender: FDA-Public Use
  Company Number: US-GLAXOSMITHKLINE-US2022AMR134792

PATIENT
  Sex: Female
  Weight: 86 kg

DRUGS (1)
  1. ZEJULA [Suspect]
     Active Substance: NIRAPARIB
     Indication: Ovarian cancer
     Dosage: 100 MG, QD
     Route: 048
     Dates: start: 202202

REACTIONS (5)
  - Pain in extremity [Not Recovered/Not Resolved]
  - Decreased activity [Unknown]
  - Sciatica [Unknown]
  - Carbohydrate antigen 125 increased [Unknown]
  - Off label use [Unknown]
